FAERS Safety Report 15280335 (Version 1)
Quarter: 2018Q3

REPORT INFORMATION
  Report Type: Spontaneous
  Country: US (occurrence: US)
  Receive Date: 20180730
  Receipt Date: 20180730
  Transmission Date: 20181010
  Serious: Yes (Other)
  Sender: FDA-Public Use
  Company Number: None

PATIENT
  Age: 37 Year
  Sex: Female
  Weight: 99 kg

DRUGS (3)
  1. SINGULAIR [Concomitant]
     Active Substance: MONTELUKAST SODIUM
  2. NEXPLANON [Suspect]
     Active Substance: ETONOGESTREL
     Indication: CONTRACEPTION
     Dosage: ?          QUANTITY:1 IMPLANT;OTHER FREQUENCY:TRANSDERMAL;?
     Route: 062
     Dates: start: 20180510, end: 20180702
  3. ZYRTEC [Concomitant]
     Active Substance: CETIRIZINE HYDROCHLORIDE

REACTIONS (8)
  - Dizziness [None]
  - Hypoaesthesia [None]
  - Viral infection [None]
  - Mood swings [None]
  - Vision blurred [None]
  - Depression [None]
  - Influenza like illness [None]
  - Anxiety [None]

NARRATIVE: CASE EVENT DATE: 20180608
